FAERS Safety Report 7474867-7 (Version None)
Quarter: 2011Q2

REPORT INFORMATION
  Report Type: 
  Country: None (occurrence: None)
  Receive Date: 20110509
  Receipt Date: 20110509
  Transmission Date: 20111010
  Serious: No
  Sender: FDA-Public Use
  Company Number: None

PATIENT
  Age: 32 Year
  Sex: Female
  Weight: 61.6892 kg

DRUGS (1)
  1. FLUCONAZOLE [Suspect]
     Indication: CANDIDIASIS
     Dosage: 1 PILL ONLY 1 TIME PO
     Route: 048
     Dates: start: 20110504, end: 20110504

REACTIONS (4)
  - HEAT RASH [None]
  - FEELING HOT [None]
  - RASH GENERALISED [None]
  - SPIDER VEIN [None]
